FAERS Safety Report 17455821 (Version 3)
Quarter: 2020Q2

REPORT INFORMATION
  Report Type: Spontaneous
  Country: FR (occurrence: FR)
  Receive Date: 20200225
  Receipt Date: 20200414
  Transmission Date: 20200713
  Serious: Yes (Death)
  Sender: FDA-Public Use
  Company Number: PHHY2019FR205473

PATIENT
  Age: 54 Year
  Sex: Male

DRUGS (18)
  1. CYCLOPHOSPHAMIDE. [Suspect]
     Active Substance: CYCLOPHOSPHAMIDE
     Indication: PROPHYLAXIS AGAINST TRANSPLANT REJECTION
  2. THIOTEPA. [Suspect]
     Active Substance: THIOTEPA
     Indication: AUTOLOGOUS HAEMATOPOIETIC STEM CELL TRANSPLANT
     Dosage: DAY-9, DAY-8, DAY-7
     Route: 065
  3. VINCRISTINE [Suspect]
     Active Substance: VINCRISTINE
     Indication: BING-NEEL SYNDROME
     Dosage: SYSTEMIC ROUTE
     Route: 065
  4. METHOTREXATE. [Suspect]
     Active Substance: METHOTREXATE
     Indication: BING-NEEL SYNDROME
     Dosage: UNK (HIGH DOSE)
     Route: 065
  5. THIOTEPA. [Suspect]
     Active Substance: THIOTEPA
     Indication: BING-NEEL SYNDROME
  6. DEXAMETHASONE. [Suspect]
     Active Substance: DEXAMETHASONE
     Indication: BING-NEEL SYNDROME
     Dosage: SYSTEMIC ROUTE
     Route: 065
  7. CYCLOPHOSPHAMIDE. [Suspect]
     Active Substance: CYCLOPHOSPHAMIDE
     Indication: BING-NEEL SYNDROME
  8. PREDNISONE. [Suspect]
     Active Substance: PREDNISONE
     Indication: BING-NEEL SYNDROME
     Dosage: SYSTEMIC ROUTE
     Route: 065
  9. THIOTEPA. [Suspect]
     Active Substance: THIOTEPA
     Indication: PROPHYLAXIS AGAINST TRANSPLANT REJECTION
  10. BUSULFAN. [Suspect]
     Active Substance: BUSULFAN
     Indication: AUTOLOGOUS HAEMATOPOIETIC STEM CELL TRANSPLANT
     Dosage: 67 MG/KG, QD (4 DOSAGES)
     Route: 065
  11. CYCLOPHOSPHAMIDE. [Suspect]
     Active Substance: CYCLOPHOSPHAMIDE
     Indication: AUTOLOGOUS HAEMATOPOIETIC STEM CELL TRANSPLANT
     Dosage: DAY-3, DAY-2
     Route: 065
  12. RITUXIMAB. [Suspect]
     Active Substance: RITUXIMAB
     Indication: BING-NEEL SYNDROME
     Dosage: SYSTEMIC ROUTE
     Route: 065
  13. BUSULFAN. [Suspect]
     Active Substance: BUSULFAN
     Indication: BING-NEEL SYNDROME
     Dosage: FOUR PER DAY DAY-6, DAY-5, DAY-4
     Route: 065
  14. BUSULFAN. [Suspect]
     Active Substance: BUSULFAN
     Indication: PROPHYLAXIS AGAINST TRANSPLANT REJECTION
     Dosage: FOUR PER DAY DAY-6, DAY-5, DAY-4;
     Route: 065
  15. DOXORUBICIN [Suspect]
     Active Substance: DOXORUBICIN
     Indication: BING-NEEL SYNDROME
     Dosage: DURING RDHAC THERAPY
     Route: 065
  16. DOXORUBICIN [Suspect]
     Active Substance: DOXORUBICIN
     Dosage: DURING BEAM THERAPY
     Route: 065
  17. CYTARABINE. [Suspect]
     Active Substance: CYTARABINE
     Indication: BING-NEEL SYNDROME
     Dosage: UNK (SYSTEMIC ROUTE)
     Route: 065
  18. CISPLATIN. [Suspect]
     Active Substance: CISPLATIN
     Indication: BING-NEEL SYNDROME
     Dosage: UNK (SYSTEMIC)
     Route: 065

REACTIONS (2)
  - Pneumonia [Fatal]
  - Toxicity to various agents [Fatal]
